FAERS Safety Report 15790483 (Version 1)
Quarter: 2019Q1

REPORT INFORMATION
  Report Type: Spontaneous
  Country: US (occurrence: US)
  Receive Date: 20190104
  Receipt Date: 20190104
  Transmission Date: 20190417
  Serious: No
  Sender: FDA-Public Use
  Company Number: US-PERRIGO-18US006352

PATIENT
  Age: 47 Year
  Sex: Female
  Weight: 77.98 kg

DRUGS (1)
  1. CLINDESSE [Suspect]
     Active Substance: CLINDAMYCIN PHOSPHATE
     Indication: BACTERIAL VAGINOSIS
     Dosage: 100MG, SINGLE
     Route: 067
     Dates: start: 20180610, end: 20180610

REACTIONS (1)
  - Chromaturia [Not Recovered/Not Resolved]

NARRATIVE: CASE EVENT DATE: 20180611
